FAERS Safety Report 14923611 (Version 3)
Quarter: 2018Q4

REPORT INFORMATION
  Report Type: Spontaneous
  Country: US (occurrence: US)
  Receive Date: 20180522
  Receipt Date: 20181128
  Transmission Date: 20190204
  Serious: Yes (Death, Other)
  Sender: FDA-Public Use
  Company Number: US-ASTRAZENECA-2018SE65576

PATIENT
  Age: 31026 Day
  Sex: Female
  Weight: 32.7 kg

DRUGS (25)
  1. NEXIUM [Suspect]
     Active Substance: ESOMEPRAZOLE MAGNESIUM
     Indication: GASTROOESOPHAGEAL REFLUX DISEASE
     Route: 048
     Dates: start: 1997, end: 2016
  2. SYMBICORT [Concomitant]
     Active Substance: BUDESONIDE\FORMOTEROL FUMARATE DIHYDRATE
  3. SPIRIVA [Concomitant]
     Active Substance: TIOTROPIUM BROMIDE MONOHYDRATE
  4. METOPROLOL. [Concomitant]
     Active Substance: METOPROLOL
  5. LOVASTATIN. [Concomitant]
     Active Substance: LOVASTATIN
  6. PREDNISOLONE. [Concomitant]
     Active Substance: PREDNISOLONE
  7. APAP CODEINE [Concomitant]
  8. PREDNISONE. [Concomitant]
     Active Substance: PREDNISONE
  9. ATENOLOL. [Concomitant]
     Active Substance: ATENOLOL
  10. CEPHALEXIN. [Concomitant]
     Active Substance: CEPHALEXIN
  11. FUROSEMIDE. [Concomitant]
     Active Substance: FUROSEMIDE
  12. AMLODIPINE [Concomitant]
     Active Substance: AMLODIPINE BESYLATE
  13. PREDNISOLONE. [Concomitant]
     Active Substance: PREDNISOLONE
  14. HUMULIN N [Concomitant]
     Active Substance: INSULIN HUMAN
  15. NEXIUM [Suspect]
     Active Substance: ESOMEPRAZOLE MAGNESIUM
     Indication: GASTROOESOPHAGEAL REFLUX DISEASE
     Route: 048
     Dates: start: 20110218
  16. HYDROCODONE BITARTRATE AND ACETAMINOPHEN [Concomitant]
     Active Substance: ACETAMINOPHEN\HYDROCODONE BITARTRATE
  17. NEXIUM 24HR [Suspect]
     Active Substance: ESOMEPRAZOLE MAGNESIUM
     Route: 048
     Dates: start: 2001, end: 2016
  18. HYDRALAZINE [Concomitant]
     Active Substance: HYDRALAZINE HYDROCHLORIDE
  19. FOSINOPRIL [Concomitant]
     Active Substance: FOSINOPRIL
  20. PROAIR HFA [Concomitant]
     Active Substance: ALBUTEROL SULFATE
  21. LISINOPRIL. [Concomitant]
     Active Substance: LISINOPRIL
  22. NEXIUM [Suspect]
     Active Substance: ESOMEPRAZOLE MAGNESIUM
     Indication: GASTROOESOPHAGEAL REFLUX DISEASE
     Route: 048
     Dates: start: 2001, end: 2016
  23. CHLORTHALID [Concomitant]
  24. CEFALEXIN [Concomitant]
     Active Substance: CEPHALEXIN
  25. ASPIRIN. [Concomitant]
     Active Substance: ASPIRIN

REACTIONS (4)
  - Chronic obstructive pulmonary disease [Fatal]
  - Renal failure [Unknown]
  - Acute kidney injury [Recovering/Resolving]
  - Chronic kidney disease [Not Recovered/Not Resolved]

NARRATIVE: CASE EVENT DATE: 20150401
